FAERS Safety Report 6274929-6 (Version None)
Quarter: 2009Q3

REPORT INFORMATION
  Report Type: 
  Country: None (occurrence: None)
  Receive Date: 20090717
  Receipt Date: 20090703
  Transmission Date: 20100115
  Serious: Yes (Hospitalization)
  Sender: FDA-Public Use
  Company Number: 322744

PATIENT
  Age: 81 Year
  Sex: Male
  Weight: 65 kg

DRUGS (6)
  1. CARBOPLATIN [Suspect]
     Indication: BLADDER CANCER
     Dosage: 5 ML, 10MG/ML
     Dates: start: 20090301
  2. OFLOXACIN [Suspect]
     Indication: URINARY TRACT INFECTION
     Dosage: 200 MG, ORAL
     Route: 048
     Dates: start: 20090303, end: 20090411
  3. GEMZAR [Concomitant]
     Indication: BLADDER CANCER
     Dates: start: 20090301
  4. (SERETIDE /01420901/) [Concomitant]
  5. CAPTOPRIL AND HYDROCHLOROTHIAZIDE [Concomitant]
  6. METOPROLOL TARTRATE [Concomitant]

REACTIONS (3)
  - CEREBROVASCULAR ACCIDENT [None]
  - TENDON RUPTURE [None]
  - URINARY TRACT INFECTION [None]
